FAERS Safety Report 6308073-6 (Version None)
Quarter: 2009Q3

REPORT INFORMATION
  Report Type: 
  Country: None (occurrence: None)
  Receive Date: 20090813
  Receipt Date: 20090803
  Transmission Date: 20100115
  Serious: Yes (Other)
  Sender: FDA-Public Use
  Company Number: B0588375A

PATIENT
  Age: 52 Year
  Sex: Male

DRUGS (11)
  1. CHLORAMBUCIL [Suspect]
     Dates: start: 20031201
  2. CHEMOTHERAPY [Concomitant]
  3. RITUXIMAB [Concomitant]
     Dosage: 700MG PER DAY
     Route: 042
  4. PREDNISONE [Concomitant]
  5. MITOXANTRONE [Concomitant]
  6. VEPESID [Concomitant]
  7. METHYLPREDNISOLONE [Concomitant]
  8. CYCLOPHOSPHAMIDE [Concomitant]
  9. DOXORUBICIN HCL [Concomitant]
  10. VINCRISTINE [Concomitant]
  11. PREDNISOLONE [Concomitant]

REACTIONS (3)
  - CONDITION AGGRAVATED [None]
  - HERPES ZOSTER [None]
  - PNEUMONIA [None]
